FAERS Safety Report 8454957-2 (Version None)
Quarter: 2012Q2

REPORT INFORMATION
  Report Type: 
  Country: None (occurrence: None)
  Receive Date: 20120621
  Receipt Date: 20120618
  Transmission Date: 20120825
  Serious: No
  Sender: FDA-Public Use
  Company Number: US-PFIZER INC-2012146907

PATIENT
  Sex: Female
  Weight: 124.3 kg

DRUGS (4)
  1. CYCLOBENZAPRINE [Concomitant]
     Dosage: 10 MG, 3X/DAY
  2. LYRICA [Suspect]
     Indication: FIBROMYALGIA
     Dosage: 75 MG, 2X/DAY
     Route: 048
     Dates: end: 20120201
  3. CYMBALTA [Concomitant]
     Dosage: UNK
  4. HYDROCODONE [Concomitant]
     Dosage: UNK, 3X/DAY

REACTIONS (5)
  - INSOMNIA [None]
  - TREMOR [None]
  - ACTIVITIES OF DAILY LIVING IMPAIRED [None]
  - NAUSEA [None]
  - ASTHENIA [None]
